FAERS Safety Report 4551316-X (Version None)
Quarter: 2005Q1

REPORT INFORMATION
  Report Type: 
  Country: None (occurrence: None)
  Receive Date: 20050110
  Receipt Date: 20041229
  Transmission Date: 20050727
  Serious: Yes (Hospitalization)
  Sender: FDA-Public Use
  Company Number: 200510003BFR

PATIENT
  Age: 77 Year
  Sex: Male

DRUGS (14)
  1. CIPROFLOXACIN HCL [Suspect]
     Indication: CYSTITIS
     Dosage: QD ORAL
     Route: 048
     Dates: start: 20030626, end: 20030602
  2. BACRRIM FORTE [Suspect]
     Indication: CYSTITIS
     Dosage: QD ORAL
     Route: 048
     Dates: start: 20030626, end: 20030602
  3. AUGMENTIN [Concomitant]
  4. OFLOCET [Concomitant]
  5. NPH INSULIN [Concomitant]
  6. MODOPAR [Concomitant]
  7. MOTILIUM [Concomitant]
  8. OMEPRAZOLE [Concomitant]
  9. GAVISCON [Concomitant]
  10. RENITEC [Concomitant]
  11. DIGOXIN [Concomitant]
  12. PREVISCAN [Concomitant]
  13. ALLOPURINOL [Concomitant]
  14. ZOLPIDEM TARTRATE [Concomitant]

REACTIONS (2)
  - ACUTE GENERALISED EXANTHEMATOUS PUSTULOSIS [None]
  - HERPES VIRUS INFECTION [None]
